FAERS Safety Report 5890984-7 (Version None)
Quarter: 2008Q3

REPORT INFORMATION
  Report Type: 
  Country: None (occurrence: None)
  Receive Date: 20080922
  Receipt Date: 20080912
  Transmission Date: 20090109
  Serious: Yes (Hospitalization)
  Sender: FDA-Public Use
  Company Number: B0527226A

PATIENT
  Age: 80 Year
  Sex: Male
  Weight: 40 kg

DRUGS (3)
  1. VALTREX [Suspect]
     Indication: HERPES ZOSTER
     Dosage: 1000MG THREE TIMES PER DAY
     Route: 048
     Dates: start: 20080620, end: 20080623
  2. ZOVIRAX [Suspect]
     Indication: HERPES ZOSTER
     Dosage: 250MG TWICE PER DAY
     Route: 042
     Dates: start: 20080624, end: 20080626
  3. ROPIVACAINE HYDROCHLORIDE [Concomitant]
     Dosage: .2PCT PER DAY

REACTIONS (11)
  - C-REACTIVE PROTEIN INCREASED [None]
  - DEPRESSED LEVEL OF CONSCIOUSNESS [None]
  - DIZZINESS [None]
  - HEADACHE [None]
  - INFECTION [None]
  - MENINGITIS [None]
  - NAUSEA [None]
  - PYREXIA [None]
  - TOXIC ENCEPHALOPATHY [None]
  - URINARY RETENTION [None]
  - WHITE BLOOD CELL COUNT INCREASED [None]
